FAERS Safety Report 6113684-7 (Version None)
Quarter: 2009Q1

REPORT INFORMATION
  Report Type: 
  Country: None (occurrence: None)
  Receive Date: 20090312
  Receipt Date: 20090303
  Transmission Date: 20090719
  Serious: Yes (Death, Other)
  Sender: FDA-Public Use
  Company Number: US-PFIZER INC-2009165809

PATIENT
  Age: 60 Year
  Sex: Female

DRUGS (10)
  1. XANAX [Suspect]
     Indication: PANIC DISORDER
     Dosage: 2 MG, 2X/DAY
     Route: 048
     Dates: start: 20020101
  2. ACCUPRIL [Concomitant]
  3. ALDACTONE [Concomitant]
  4. COREG [Concomitant]
  5. DEMADEX [Concomitant]
  6. K-DUR [Concomitant]
  7. LANOXIN [Concomitant]
  8. LIPITOR [Concomitant]
  9. AMBIEN [Concomitant]
  10. TRILEPTAL [Concomitant]

REACTIONS (2)
  - DEPRESSION [None]
  - MYOCARDIAL INFARCTION [None]
